FAERS Safety Report 5509806-9 (Version None)
Quarter: 2007Q4

REPORT INFORMATION
  Report Type: 
  Country: None (occurrence: None)
  Receive Date: 20071023
  Receipt Date: 20070927
  Transmission Date: 20080405
  Serious: Yes (Hospitalization, Other)
  Sender: FDA-Public Use
  Company Number: CLOF-10680

PATIENT
  Age: 46 Year
  Sex: Male

DRUGS (16)
  1. CLOFARABINE. MFR: GENZYME [Suspect]
     Indication: ACUTE MYELOID LEUKAEMIA
     Dosage: 22.5 MG/M2 DAILY IV
     Route: 042
     Dates: start: 20070915, end: 20070919
  2. IDARUBICIN HCL [Suspect]
     Indication: ACUTE MYELOID LEUKAEMIA
     Dosage: 10 MG/M2 DAILY IV
     Route: 042
     Dates: start: 20070901, end: 20070901
  3. ACYCLOVIR [Concomitant]
  4. AMIKACIN [Concomitant]
  5. AZITHROMYCIN [Concomitant]
  6. PRESIDEX [Concomitant]
  7. ENALAPRIL [Concomitant]
  8. HYDROCORTISONE [Concomitant]
  9. INSULIN [Concomitant]
  10. ELECTROLYTE REPLACEMENT [Concomitant]
  11. MEROPENEM [Concomitant]
  12. METRONIDAZOLE HCL [Concomitant]
  13. PANTOPRAZOLE SODIUM [Concomitant]
  14. VANCOMYCIN [Concomitant]
  15. VORICONAZOLE [Concomitant]
  16. DAPTOMYCIN [Concomitant]

REACTIONS (3)
  - DYSPNOEA [None]
  - HAEMOGLOBIN DECREASED [None]
  - NEUTROPENIC INFECTION [None]
